FAERS Safety Report 5603429-9 (Version None)
Quarter: 2008Q1

REPORT INFORMATION
  Report Type: 
  Country: None (occurrence: None)
  Receive Date: 20080123
  Receipt Date: 20080115
  Transmission Date: 20080703
  Serious: Yes (Hospitalization, Other)
  Sender: FDA-Public Use
  Company Number: 2007SP024666

PATIENT
  Age: 29 Year
  Sex: Male
  Weight: 48 kg

DRUGS (5)
  1. PEG-INTRON [Suspect]
     Indication: HEPATITIS C
     Dosage: 80 MCG;QW;SC
     Route: 058
     Dates: start: 20070306, end: 20071110
  2. REBETOL [Suspect]
     Indication: HEPATITIS C
     Dosage: 800 MG;QD;PO
     Route: 048
     Dates: start: 20070307, end: 20071110
  3. SUBUTEX [Concomitant]
  4. CREON [Concomitant]
  5. MOVICOL [Concomitant]

REACTIONS (14)
  - ALCOHOL ABUSE [None]
  - AORTIC VALVE DISEASE [None]
  - AORTIC VALVE INCOMPETENCE [None]
  - BILIRUBIN URINE [None]
  - CARDIOGENIC SHOCK [None]
  - CARDIOMYOPATHY [None]
  - ENDOCARDITIS BACTERIAL [None]
  - FAECALOMA [None]
  - MITRAL VALVE INCOMPETENCE [None]
  - PANCREATITIS [None]
  - PLEURAL EFFUSION [None]
  - PNEUMONIA [None]
  - PROTEIN URINE PRESENT [None]
  - UROBILIN URINE [None]
